FAERS Safety Report 7979872-X (Version None)
Quarter: 2011Q4

REPORT INFORMATION
  Report Type: 
  Country: None (occurrence: None)
  Receive Date: 20111214
  Receipt Date: 20111207
  Transmission Date: 20120403
  Serious: Yes (Death, Hospitalization, Other)
  Sender: FDA-Public Use
  Company Number: MX-BRISTOL-MYERS SQUIBB COMPANY-16282196

PATIENT
  Age: 72 Year
  Sex: Female

DRUGS (1)
  1. IRBESARTAN AND HYDROCHLOROTHIAZIDE [Suspect]
     Indication: HYPERTENSION
     Route: 048
     Dates: start: 20110524, end: 20110524

REACTIONS (6)
  - CARDIAC ARREST [None]
  - OSTEOARTHRITIS [None]
  - ARTHRALGIA [None]
  - FLUID RETENTION [None]
  - INFLUENZA [None]
  - DIARRHOEA [None]
